FAERS Safety Report 4674395-8 (Version None)
Quarter: 2005Q2

REPORT INFORMATION
  Report Type: 
  Country: None (occurrence: None)
  Receive Date: 20050526
  Receipt Date: 20041021
  Transmission Date: 20051028
  Serious: Yes (Other)
  Sender: FDA-Public Use
  Company Number: PHBS2004BR13972

PATIENT
  Age: 63 Year
  Sex: Male

DRUGS (8)
  1. CHEMOTHERAPEUTICS,OTHER [Concomitant]
     Dosage: UNK, UNK
     Route: 065
     Dates: start: 20040424, end: 20040623
  2. CORTICOSTEROIDS [Concomitant]
     Route: 065
  3. CISPLATIN [Concomitant]
     Dosage: 144 MG EVERY 8 DAYS
     Route: 065
     Dates: start: 20030224, end: 20030719
  4. GEMCITABINE [Concomitant]
     Dosage: 2412 MG EVERY 8 DAYS
     Route: 065
     Dates: start: 20030224, end: 20030708
  5. DECADRON [Concomitant]
     Route: 065
  6. MAREVAN [Concomitant]
     Route: 065
  7. DOCETAXEL [Concomitant]
     Dosage: 149.2 MG EVERY 3 DAYS 3 CYCLES
     Route: 065
  8. ZOMETA [Suspect]
     Indication: LUNG ADENOCARCINOMA
     Dosage: 4 MG, QMO
     Route: 042
     Dates: start: 20030224

REACTIONS (5)
  - ASEPTIC NECROSIS BONE [None]
  - BONE TRIMMING [None]
  - INJURY [None]
  - PROSTHESIS USER [None]
  - TOOTH EXTRACTION [None]
